FAERS Safety Report 7211245-X (Version None)
Quarter: 2011Q1

REPORT INFORMATION
  Report Type: 
  Country: None (occurrence: None)
  Receive Date: 20110105
  Receipt Date: 20110103
  Transmission Date: 20110831
  Serious: Yes (Other)
  Sender: FDA-Public Use
  Company Number: US-JNJFOC-20110100385

PATIENT
  Sex: Female
  Weight: 81.19 kg

DRUGS (3)
  1. DURAGESIC-50 [Suspect]
     Route: 062
  2. DURAGESIC-50 [Suspect]
     Indication: PAIN
     Route: 062
  3. AVINZA [Concomitant]
     Indication: PAIN
     Route: 048

REACTIONS (11)
  - SLEEP APNOEA SYNDROME [None]
  - GASTRIC DISORDER [None]
  - ANXIETY [None]
  - THYROID DISORDER [None]
  - APPLICATION SITE RASH [None]
  - INSOMNIA [None]
  - GASTROINTESTINAL DISORDER [None]
  - SINUS DISORDER [None]
  - BREAKTHROUGH PAIN [None]
  - MUSCLE SPASMS [None]
  - PRODUCT ADHESION ISSUE [None]
